FAERS Safety Report 5860928-2 (Version None)
Quarter: 2008Q3

REPORT INFORMATION
  Report Type: 
  Country: None (occurrence: None)
  Receive Date: 20080826
  Receipt Date: 20080821
  Transmission Date: 20090109
  Serious: Yes (Hospitalization, Disabling, Other)
  Sender: FDA-Public Use
  Company Number: 2008S1007522

PATIENT
  Age: 63 Year
  Sex: Male
  Weight: 64.4108 kg

DRUGS (6)
  1. PHOSPHOSODA FLAVOR NOT SPECIFIED [Suspect]
     Indication: COLONOSCOPY
     Dosage: PO
     Route: 048
     Dates: start: 20080201, end: 20080201
  2. METFORMIN HCL [Concomitant]
  3. BYETTA [Concomitant]
  4. ZETIA [Concomitant]
  5. LANTUS [Concomitant]
  6. AVAPRO [Concomitant]

REACTIONS (5)
  - DEHYDRATION [None]
  - DIALYSIS [None]
  - HYPERPHOSPHATAEMIA [None]
  - LETHARGY [None]
  - RENAL FAILURE [None]
